FAERS Safety Report 5868483-8 (Version None)
Quarter: 2008Q3

REPORT INFORMATION
  Report Type: 
  Country: None (occurrence: None)
  Receive Date: 20080902
  Receipt Date: 20080902
  Transmission Date: 20090109
  Serious: Yes (Other)
  Sender: FDA-Public Use
  Company Number: None

PATIENT
  Age: 21 Year
  Sex: Male
  Weight: 63.5036 kg

DRUGS (1)
  1. NICOTINE [Suspect]
     Indication: TOBACCO USER
     Dosage: SEVERAL INHALATIONS INHAL
     Route: 055
     Dates: start: 20080810, end: 20080827

REACTIONS (13)
  - ANGER [None]
  - CONFUSIONAL STATE [None]
  - DEPRESSION [None]
  - DYSARTHRIA [None]
  - HEADACHE [None]
  - HEPATIC PAIN [None]
  - INCOHERENT [None]
  - NAUSEA [None]
  - PHARMACEUTICAL PRODUCT COMPLAINT [None]
  - POISONING [None]
  - RENAL PAIN [None]
  - STUPOR [None]
  - THINKING ABNORMAL [None]
